FAERS Safety Report 6647347-6 (Version None)
Quarter: 2010Q1

REPORT INFORMATION
  Report Type: 
  Country: None (occurrence: None)
  Receive Date: 20100323
  Receipt Date: 20100312
  Transmission Date: 20100710
  Serious: Yes (Hospitalization)
  Sender: FDA-Public Use
  Company Number: B0641421A

PATIENT
  Sex: Female
  Weight: 64 kg

DRUGS (5)
  1. LAPATINIB [Suspect]
     Indication: GLIOMA
     Dosage: 1000MG PER DAY
     Route: 048
     Dates: start: 20100125
  2. PROPAFENONE HYDROCHLORIDE [Concomitant]
     Route: 048
  3. DEPAKINE CHRONO [Concomitant]
     Route: 048
  4. LOSEC [Concomitant]
     Route: 048
  5. DULCOLAX [Concomitant]
     Route: 054

REACTIONS (1)
  - ANAEMIA [None]
